FAERS Safety Report 6466967-5 (Version None)
Quarter: 2009Q4

REPORT INFORMATION
  Report Type: 
  Country: None (occurrence: None)
  Receive Date: 20091202
  Receipt Date: 20091119
  Transmission Date: 20100525
  Serious: Yes (Hospitalization, Other)
  Sender: FDA-Public Use
  Company Number: US-ELI_LILLY_AND_COMPANY-US200911005954

PATIENT
  Sex: Female

DRUGS (4)
  1. PROZAC [Suspect]
     Indication: DEPRESSION
     Dosage: 40 MG, DAILY (1/D)
     Route: 065
     Dates: start: 20020101
  2. ATIVAN [Concomitant]
     Dosage: 0.5 MG, EVERY 3 HRS
     Route: 065
  3. REGLAN [Concomitant]
     Indication: NAUSEA
     Dosage: UNK, UNKNOWN
     Route: 065
  4. PROMETHAZINE [Concomitant]
     Indication: NAUSEA
     Dosage: UNK, UNKNOWN
     Route: 065

REACTIONS (6)
  - AMYLOIDOSIS [None]
  - DYSPHAGIA [None]
  - GASTROINTESTINAL HYPOMOTILITY [None]
  - MULTIPLE MYELOMA [None]
  - RENAL FAILURE [None]
  - TONGUE PARALYSIS [None]
